FAERS Safety Report 21895817 (Version 1)
Quarter: 2023Q1

REPORT INFORMATION
  Report Type: Spontaneous
  Country: DE (occurrence: DE)
  Receive Date: 20230123
  Receipt Date: 20230123
  Transmission Date: 20230418
  Serious: Yes (Other)
  Sender: FDA-Public Use
  Company Number: DE-AMGEN-DEUSP2022194309

PATIENT
  Age: 61 Year
  Sex: Female
  Weight: 84 kg

DRUGS (4)
  1. REPATHA [Suspect]
     Active Substance: EVOLOCUMAB
     Indication: Product used for unknown indication
     Dosage: 140 MILLIGRAM
     Route: 065
     Dates: start: 20221016, end: 20221016
  2. XARELTO [Concomitant]
     Active Substance: RIVAROXABAN
     Dosage: 1 DOSAGE FORM
  3. CANDESARTAN [Concomitant]
     Active Substance: CANDESARTAN
     Dosage: 2X 1/2 DOSAGE FORM
  4. VERAPAMIL [Concomitant]
     Active Substance: VERAPAMIL HYDROCHLORIDE
     Dosage: 2X 1/2 DOSAGE FORM

REACTIONS (3)
  - Lung disorder [Unknown]
  - Influenza like illness [Recovered/Resolved]
  - Nocturnal dyspnoea [Unknown]

NARRATIVE: CASE EVENT DATE: 20221001
